FAERS Safety Report 10775343 (Version 2)
Quarter: 2015Q2

REPORT INFORMATION
  Report Type: Spontaneous
  Country: US (occurrence: None)
  Receive Date: 20150205
  Receipt Date: 20150623
  Transmission Date: 20150821
  Serious: Yes (Other)
  Sender: FDA-Public Use
  Company Number: US-H14001-15-00140

PATIENT
  Age: 65 Year

DRUGS (4)
  1. PREDNISONE (PREDNISONE) (UNKNOWN) [Suspect]
     Active Substance: PREDNISONE
     Indication: CHRONIC LYMPHOCYTIC LEUKAEMIA
     Dosage: (100 MG, DAYS 1-5; EVERY 21 DAYS), ORAL
     Route: 048
     Dates: start: 20130416
  2. CYCLOPHOSPHAMIDE (CYCLOPHOSPHAMIDE) (UNKNOWN) (CYCLOPHOSAPHAMIDE) [Suspect]
     Active Substance: CYCLOPHOSPHAMIDE
     Indication: CHRONIC LYMPHOCYTIC LEUKAEMIA
     Dosage: 28.5714 MG/M2 (600 MG/M2, 1 IN 21 D), INTRAVENOUS (NOT OTHERWISE SPECIFIED)?
     Route: 042
     Dates: start: 20130416
  3. DOXORUBICIN (DOXORUBICIN) [Suspect]
     Active Substance: DOXORUBICIN
     Indication: CHRONIC LYMPHOCYTIC LEUKAEMIA
     Dosage: (25MG/M2, 1 IN 21 D), INTRAVENOUS (NOT OTHERWISE SPECIFIED)
     Route: 042
     Dates: start: 20130416
  4. VINCRISTINE (VINCRISTINE) (UNKNOWN) (VINCRISTINE) [Suspect]
     Active Substance: VINCRISTINE
     Indication: CHRONIC LYMPHOCYTIC LEUKAEMIA
     Dosage: (1 MG/M2, 1 IN 21 D), INTRAVENOUS (NOT OTHERWISE SPECIFIED)?
     Route: 042
     Dates: start: 20130416

REACTIONS (1)
  - Pathological fracture [None]

NARRATIVE: CASE EVENT DATE: 20130417
